FAERS Safety Report 6693952-0 (Version None)
Quarter: 2010Q2

REPORT INFORMATION
  Report Type: 
  Country: None (occurrence: None)
  Receive Date: 20100423
  Receipt Date: 20100413
  Transmission Date: 20101027
  Serious: Yes (Death)
  Sender: FDA-Public Use
  Company Number: ES-PFIZER INC-2010046793

PATIENT
  Age: 77 Year
  Sex: Male

DRUGS (6)
  1. SERTRALINE HCL [Suspect]
     Dosage: 50 MG/DAY
     Route: 048
     Dates: end: 20081014
  2. ALDOCUMAR [Interacting]
     Indication: ATRIAL FIBRILLATION
     Dosage: UNK
     Route: 048
     Dates: end: 20081014
  3. ASPIRIN [Interacting]
     Dosage: 100 MG/DAY
     Route: 048
     Dates: end: 20081014
  4. IDAPTAN [Concomitant]
     Indication: ISCHAEMIC CARDIOMYOPATHY
     Dosage: 60 MG, 1X/DAY
     Route: 048
     Dates: end: 20081014
  5. ENALAPRIL [Concomitant]
     Indication: HYPERTENSION
     Dosage: 10 MG, 1X/DAY
     Route: 048
     Dates: end: 20081014
  6. OMEPRAZOLE [Concomitant]
     Indication: PROPHYLAXIS
     Dosage: 20 MG, 1X/DAY
     Route: 048
     Dates: end: 20081016

REACTIONS (2)
  - CEREBRAL HAEMATOMA [None]
  - DRUG INTERACTION [None]
